FAERS Safety Report 22956203 (Version 2)
Quarter: 2023Q4

REPORT INFORMATION
  Report Type: Spontaneous
  Country: US (occurrence: US)
  Receive Date: 20230919
  Receipt Date: 20231204
  Transmission Date: 20240109
  Serious: Yes (Life-Threatening, Other)
  Sender: FDA-Public Use
  Company Number: US-SERVIER-S23009249

PATIENT

DRUGS (9)
  1. ASPARLAS [Suspect]
     Active Substance: CALASPARGASE PEGOL-MKNL
     Indication: B-cell type acute leukaemia
     Dosage: 2500 IU/M2
     Route: 042
     Dates: start: 20230213
  2. ASPARLAS [Suspect]
     Active Substance: CALASPARGASE PEGOL-MKNL
     Dosage: 1525 U
     Route: 042
     Dates: start: 20230707, end: 20230707
  3. AMLODIPINE [Concomitant]
     Active Substance: AMLODIPINE BESYLATE
     Indication: Hypertension
     Dosage: 2 MG
     Dates: start: 202302
  4. DEXAMETHASONE [Concomitant]
     Active Substance: DEXAMETHASONE
     Indication: B-cell type acute leukaemia
     Dosage: 6 MG
     Dates: start: 202305
  5. FAMOTIDINE [Concomitant]
     Active Substance: FAMOTIDINE
     Indication: Premedication
     Dosage: 7.28 MG, ONE DOSE
     Dates: start: 20230707, end: 20230707
  6. FAMOTIDINE [Concomitant]
     Active Substance: FAMOTIDINE
     Indication: B-cell type acute leukaemia
     Dosage: 8 MG
     Dates: start: 202302
  7. DIPHENHYDRAMINE [Concomitant]
     Active Substance: DIPHENHYDRAMINE
     Indication: Premedication
     Dosage: 12.5 MG, ONE DOSE
     Dates: start: 20230707, end: 20230707
  8. ONDANSETRON [Concomitant]
     Active Substance: ONDANSETRON
     Indication: B-cell type acute leukaemia
     Dosage: 7.2 MG
     Dates: start: 202302
  9. SULFAMETHOXAZOLE AND TRIMETHOPRIM [Concomitant]
     Active Substance: SULFAMETHOXAZOLE\TRIMETHOPRIM
     Indication: B-cell type acute leukaemia
     Dosage: 400-80 MG
     Dates: start: 202302

REACTIONS (1)
  - Anaphylactic reaction [Recovered/Resolved]

NARRATIVE: CASE EVENT DATE: 20230707
